FAERS Safety Report 18216711 (Version 3)
Quarter: 2022Q1

REPORT INFORMATION
  Report Type: Other
  Country: CA (occurrence: None)
  Receive Date: 20200901
  Receipt Date: 20220223
  Transmission Date: 20220424
  Serious: No
  Sender: FDA-Public Use
  Company Number: CA-ROCHE-2669137

PATIENT
  Sex: Female

DRUGS (7)
  1. OCREVUS [Suspect]
     Active Substance: OCRELIZUMAB
     Indication: Relapsing-remitting multiple sclerosis
     Dosage: THEN 600 MG EVERY 6 MONTH.
     Route: 042
     Dates: start: 20180927
  2. MODAFINIL [Concomitant]
     Active Substance: MODAFINIL
     Indication: Fatigue
  3. MODAFINIL [Concomitant]
     Active Substance: MODAFINIL
     Indication: Asthenia
  4. RIZATRIPTAN [Concomitant]
     Active Substance: RIZATRIPTAN
     Indication: Migraine
  5. IRBESARTAN [Concomitant]
     Active Substance: IRBESARTAN
     Indication: Hypertension
     Route: 048
  6. TYLENOL ARTHRITIS PAIN [Concomitant]
     Active Substance: ACETAMINOPHEN
  7. NAPROXEN [Concomitant]
     Active Substance: NAPROXEN

REACTIONS (4)
  - Vulvovaginal mycotic infection [Not Recovered/Not Resolved]
  - Oral candidiasis [Not Recovered/Not Resolved]
  - Bladder spasm [Not Recovered/Not Resolved]
  - Cystitis [Not Recovered/Not Resolved]
